FAERS Safety Report 7325779-0 (Version None)
Quarter: 2011Q1

REPORT INFORMATION
  Report Type: 
  Country: None (occurrence: None)
  Receive Date: 20110302
  Receipt Date: 20110218
  Transmission Date: 20110831
  Serious: Yes (Hospitalization)
  Sender: FDA-Public Use
  Company Number: AT-SANOFI-AVENTIS-2011SA010449

PATIENT
  Age: 66 Year
  Sex: Female

DRUGS (1)
  1. ZOLPIDEM TARTRATE [Suspect]
     Indication: INTENTIONAL OVERDOSE
     Dosage: 25 DOSAGE FORMS (NOS).
     Route: 048
     Dates: start: 20101104, end: 20101104

REACTIONS (7)
  - HYPOTENSION [None]
  - RENAL FAILURE [None]
  - DIZZINESS [None]
  - INTENTIONAL OVERDOSE [None]
  - CONFUSIONAL STATE [None]
  - SOMNOLENCE [None]
  - LIVER INJURY [None]
